FAERS Safety Report 24187491 (Version 1)
Quarter: 2024Q3

REPORT INFORMATION
  Report Type: Spontaneous
  Country: FR (occurrence: FR)
  Receive Date: 20240808
  Receipt Date: 20240808
  Transmission Date: 20241017
  Serious: Yes (Hospitalization)
  Sender: RANBAXY
  Company Number: FR-SUN PHARMACEUTICAL INDUSTRIES LTD-2024RR-461208

PATIENT
  Age: 44 Year
  Sex: Male

DRUGS (2)
  1. QUETIAPINE [Interacting]
     Active Substance: QUETIAPINE
     Indication: Thymus disorder
     Dosage: 50 MILLIGRAM, DAILY
     Route: 048
     Dates: start: 20240424, end: 20240501
  2. OXAZEPAM [Interacting]
     Active Substance: OXAZEPAM
     Indication: Thymus disorder
     Dosage: 10 MILLIGRAM, DAILY
     Route: 048
     Dates: start: 20240424, end: 20240501

REACTIONS (4)
  - Anterograde amnesia [Recovered/Resolved]
  - Drug interaction [Recovered/Resolved]
  - Road traffic accident [Recovered/Resolved]
  - Disturbance in attention [Recovered/Resolved]

NARRATIVE: CASE EVENT DATE: 20240501
